FAERS Safety Report 25554251 (Version 1)
Quarter: 2025Q3

REPORT INFORMATION
  Report Type: Spontaneous
  Country: US (occurrence: US)
  Receive Date: 20250715
  Receipt Date: 20250715
  Transmission Date: 20251020
  Serious: Yes (Other)
  Sender: PFIZER
  Company Number: US-PFIZER INC-PV202500083199

PATIENT
  Sex: Female

DRUGS (4)
  1. DOXYCYCLINE HYCLATE [Suspect]
     Active Substance: DOXYCYCLINE HYCLATE
  2. GOMEKLI [Suspect]
     Active Substance: MIRDAMETINIB
     Indication: Neurofibromatosis
  3. GOMEKLI [Suspect]
     Active Substance: MIRDAMETINIB
     Indication: Neurofibroma
  4. MINOCYCLINE [Suspect]
     Active Substance: MINOCYCLINE HYDROCHLORIDE

REACTIONS (5)
  - Syncope [Unknown]
  - Seizure [Unknown]
  - Rash [Unknown]
  - Dehydration [Unknown]
  - Gastrointestinal disorder [Unknown]
